FAERS Safety Report 19954623 (Version 1)
Quarter: 2021Q4

REPORT INFORMATION
  Report Type: Spontaneous
  Country: US (occurrence: US)
  Receive Date: 20211014
  Receipt Date: 20211014
  Transmission Date: 20220303
  Serious: No
  Sender: FDA-Public Use
  Company Number: US-GLAXOSMITHKLINE-USCH2021070425

PATIENT
  Age: 69 Year
  Sex: Female

DRUGS (1)
  1. NICORETTE WHITE ICE MINT [Suspect]
     Active Substance: NICOTINE
     Indication: Drug withdrawal maintenance therapy
     Dosage: UNK
     Dates: start: 20211005, end: 20211008

REACTIONS (4)
  - Throat irritation [Unknown]
  - Dyspepsia [Unknown]
  - Hiccups [Unknown]
  - Wrong technique in product usage process [Unknown]

NARRATIVE: CASE EVENT DATE: 20211005
